FAERS Safety Report 9044864 (Version 11)
Quarter: 2014Q4

REPORT INFORMATION
  Report Type: Spontaneous
  Country: US (occurrence: US)
  Receive Date: 20130130
  Receipt Date: 20141211
  Transmission Date: 20150529
  Serious: Yes (Death, Hospitalization, Other)
  Sender: FDA-Public Use
  Company Number: US-GLAXOSMITHKLINE-A0867748A

PATIENT
  Age: 50 Year
  Sex: Female
  Weight: 71 kg

DRUGS (24)
  1. XANAX [Concomitant]
     Active Substance: ALPRAZOLAM
     Route: 048
  2. NEOSPORIN [Concomitant]
     Active Substance: BACITRACIN ZINC\NEOMYCIN SULFATE\POLYMYXIN B SULFATE
     Route: 061
  3. FLOLAN [Suspect]
     Active Substance: EPOPROSTENOL SODIUM
     Dates: start: 199508
  4. LUNESTA [Concomitant]
     Active Substance: ESZOPICLONE
     Route: 048
  5. FLOLAN [Suspect]
     Active Substance: EPOPROSTENOL SODIUM
     Dates: start: 199508
  6. COMPAZINE [Concomitant]
     Active Substance: PROCHLORPERAZINE MALEATE
     Route: 048
  7. ELIDEL CREAM 1% [Concomitant]
     Route: 061
  8. FLOLAN [Suspect]
     Active Substance: EPOPROSTENOL SODIUM
     Dates: start: 199508
  9. FLOLAN [Suspect]
     Active Substance: EPOPROSTENOL SODIUM
     Dosage: 118 NG/KG/MIN CONTINUOUSLY; CONCENTRATION: 120,000 NG/ML; PUMP RATE: 89 ML/DAY, VIAL STRENGTH: 1.5MG
     Route: 042
     Dates: start: 19990914
  10. NASONEX [Concomitant]
     Active Substance: MOMETASONE FUROATE
     Route: 045
  11. SYNTHROID [Concomitant]
     Active Substance: LEVOTHYROXINE SODIUM
  12. COUMADIN [Concomitant]
     Active Substance: WARFARIN SODIUM
  13. FLOLAN [Suspect]
     Active Substance: EPOPROSTENOL SODIUM
     Dates: start: 199508
  14. FLOLAN [Suspect]
     Active Substance: EPOPROSTENOL SODIUM
     Indication: PULMONARY ARTERIAL HYPERTENSION
     Route: 042
     Dates: start: 199508
  15. PERCOCET [Concomitant]
     Active Substance: ACETAMINOPHEN\OXYCODONE HYDROCHLORIDE
     Route: 048
  16. PRILOSEC [Concomitant]
     Active Substance: OMEPRAZOLE MAGNESIUM
     Route: 048
  17. METOPROLOL [Concomitant]
     Active Substance: METOPROLOL
     Route: 048
  18. FLOLAN [Suspect]
     Active Substance: EPOPROSTENOL SODIUM
     Dates: start: 199508
  19. FLOLAN [Suspect]
     Active Substance: EPOPROSTENOL SODIUM
     Dates: start: 199508
  20. FLOLAN [Suspect]
     Active Substance: EPOPROSTENOL SODIUM
     Dates: start: 199508
  21. OXYCONTIN [Concomitant]
     Active Substance: OXYCODONE HYDROCHLORIDE
     Route: 048
  22. FLOLAN [Suspect]
     Active Substance: EPOPROSTENOL SODIUM
     Indication: PULMONARY ARTERIAL HYPERTENSION
     Dosage: CONTINUOUS 116 NG/KG/MINDOSE: 117 NG/KG/MIN, CONCENTRATION: 120000 NG/ML, PUMP RATE: 88 ML/DAY,[...]
     Route: 042
     Dates: start: 199508
  23. SOMA [Concomitant]
     Active Substance: CARISOPRODOL
     Route: 048
  24. LASIX [Concomitant]
     Active Substance: FUROSEMIDE

REACTIONS (10)
  - Death [Fatal]
  - Gallbladder disorder [Recovering/Resolving]
  - Dyspnoea [Unknown]
  - Fluid retention [Unknown]
  - Oxygen saturation decreased [Recovering/Resolving]
  - Atrial fibrillation [Unknown]
  - Hospitalisation [Unknown]
  - Arthralgia [Recovering/Resolving]
  - Fibromyalgia [Recovering/Resolving]
  - Ill-defined disorder [Unknown]

NARRATIVE: CASE EVENT DATE: 20140806
